FAERS Safety Report 9812661 (Version 2)
Quarter: 2014Q1

REPORT INFORMATION
  Report Type: Spontaneous
  Country: US (occurrence: US)
  Receive Date: 20140113
  Receipt Date: 20140113
  Transmission Date: 20141002
  Serious: Yes (Hospitalization, Disabling)
  Sender: FDA-Public Use
  Company Number: US-SA-2013SA129878

PATIENT
  Age: 60 Year
  Sex: Female
  Weight: 104.32 kg

DRUGS (6)
  1. PLAVIX [Suspect]
     Indication: THROMBOSIS
     Route: 048
     Dates: start: 20090316, end: 20130920
  2. LISINOPRIL [Concomitant]
  3. LOVASTATIN [Concomitant]
  4. LANTUS [Concomitant]
     Dosage: 40U SQ DAILY DOSE:40 UNIT(S)
     Route: 058
  5. VICTOZA [Concomitant]
     Indication: BLOOD GLUCOSE
     Route: 058
     Dates: start: 2012
  6. LIPITOR [Concomitant]
     Indication: BLOOD CHOLESTEROL
     Route: 065
     Dates: start: 2009

REACTIONS (3)
  - Condition aggravated [Not Recovered/Not Resolved]
  - Cerebrovascular accident [Not Recovered/Not Resolved]
  - Muscular weakness [Unknown]
